FAERS Safety Report 10347517 (Version 6)
Quarter: 2015Q1

REPORT INFORMATION
  Report Type: Spontaneous
  Country: US (occurrence: None)
  Receive Date: 20140725
  Receipt Date: 20150102
  Transmission Date: 20150720
  Serious: Yes (Hospitalization, Other)
  Sender: FDA-Public Use
  Company Number: ADR-2014-01296

PATIENT
  Age: 11 Year
  Sex: Female

DRUGS (16)
  1. ZANTAC [Suspect]
     Active Substance: RANITIDINE HYDROCHLORIDE
     Dosage: 5 ML TWICE DAILY?
  2. ACETAMINOPHEN. [Suspect]
     Active Substance: ACETAMINOPHEN
     Dosage: GIVE 10 MLS ORALLY EVERY 4 HOURS AS NEEDED
     Route: 048
  3. DIAZEPAM. [Suspect]
     Active Substance: DIAZEPAM
  4. BACLOFEN. [Suspect]
     Active Substance: BACLOFEN
  5. LAMICTAL [Suspect]
     Active Substance: LAMOTRIGINE
     Dosage: DISSOLVE 1.5 TABS IN WATER TWICE DAILY AND ADMINISTER VIA GT?
     Route: 048
  6. ZONEGRAN [Suspect]
     Active Substance: ZONISAMIDE
     Dosage: 3 CAPS TWICE DAILY
  7. NASONEX [Suspect]
     Active Substance: MOMETASONE FUROATE
     Dosage: 1 SPRAY DAILY
  8. AMPICILLIN [Suspect]
     Active Substance: AMPICILLIN
  9. LORATADINE. [Suspect]
     Active Substance: LORATADINE
     Dosage: ORAL SYRUP; 10 MLS ORALLY DAILY
     Route: 048
  10. PULMICORT TURBUHALER [Suspect]
     Active Substance: BUDESONIDE
     Dosage: 1 VIAL INHALED TWICE DAILY?
  11. MYLANTA [Suspect]
     Active Substance: ALUMINUM HYDROXIDE\MAGNESIUM HYDROXIDE\SIMETHICONE
  12. ALBUTEROL. [Suspect]
     Active Substance: ALBUTEROL
     Dosage: 2 PUFFS INHALED EVERY 4 HOURS AS NEEDED
  13. MELATONIN [Suspect]
     Active Substance: MELATONIN
     Dosage: 3 MLS AT BEDTIME
  14. MIRALAX [Suspect]
     Active Substance: POLYETHYLENE GLYCOL 3350
     Dosage: 1 CAPFUL ON EVEN DAYS, 0.5 CAPFUL ON ODD DAYS.
  15. LIORESAL [Suspect]
     Active Substance: BACLOFEN
     Indication: MUSCLE SPASTICITY
  16. SINGULAIR [Suspect]
     Active Substance: MONTELUKAST SODIUM
     Dosage: 1 TAB ORALLY DAILY IN EVENING
     Route: 048

REACTIONS (9)
  - Implant site extravasation [None]
  - Ileus [None]
  - Device leakage [None]
  - Device connection issue [None]
  - Device dislocation [None]
  - Medical device complication [None]
  - Device breakage [None]
  - Pseudomeningocele [None]
  - Bloody discharge [None]

NARRATIVE: CASE EVENT DATE: 20140715
